FAERS Safety Report 4836058-5 (Version None)
Quarter: 2005Q4

REPORT INFORMATION
  Report Type: 
  Country: None (occurrence: None)
  Receive Date: 20051121
  Receipt Date: 20051121
  Transmission Date: 20060501
  Serious: No
  Sender: FDA-Public Use
  Company Number: None

PATIENT
  Sex: Male
  Weight: 60.3284 kg

DRUGS (1)
  1. IRON DEXTRAN [Suspect]
     Indication: ANAEMIA
     Dosage: 12.5 MG ONCE IV
     Route: 042
     Dates: start: 20031003, end: 20051003

REACTIONS (3)
  - BACK PAIN [None]
  - BLOOD PRESSURE DECREASED [None]
  - HEART RATE DECREASED [None]
